FAERS Safety Report 6461960-0 (Version None)
Quarter: 2009Q4

REPORT INFORMATION
  Report Type: 
  Country: None (occurrence: None)
  Receive Date: 20091130
  Receipt Date: 20091116
  Transmission Date: 20100525
  Serious: Yes (Death)
  Sender: FDA-Public Use
  Company Number: AU-SANOFI-AVENTIS-2009SA002147

PATIENT
  Age: 68 Year
  Sex: Female

DRUGS (7)
  1. ARAVA [Suspect]
     Indication: RHEUMATOID ARTHRITIS
     Route: 048
     Dates: start: 20050517
  2. PREDNISOLONE [Concomitant]
  3. ROCALTROL [Concomitant]
  4. SINEMET [Concomitant]
  5. ATENOLOL [Concomitant]
  6. CALTRATE [Concomitant]
  7. FOSAMAX [Concomitant]

REACTIONS (1)
  - DEATH [None]
